FAERS Safety Report 7769413-4 (Version None)
Quarter: 2011Q3

REPORT INFORMATION
  Report Type: 
  Country: None (occurrence: None)
  Receive Date: 20110922
  Receipt Date: 20110519
  Transmission Date: 20111222
  Serious: No
  Sender: FDA-Public Use
  Company Number: US-ASTRAZENECA-2011SE30885

PATIENT
  Age: 49 Year
  Sex: Male
  Weight: 83.5 kg

DRUGS (1)
  1. SEROQUEL [Suspect]
     Indication: HALLUCINATION
     Route: 048
     Dates: start: 20101001

REACTIONS (3)
  - AGGRESSION [None]
  - DELUSION [None]
  - OFF LABEL USE [None]
